FAERS Safety Report 5833438-6 (Version None)
Quarter: 2008Q3

REPORT INFORMATION
  Report Type: 
  Country: None (occurrence: None)
  Receive Date: 20080801
  Receipt Date: 20080801
  Transmission Date: 20090109
  Serious: No
  Sender: FDA-Public Use
  Company Number: None

PATIENT
  Age: 35 Year
  Sex: Female
  Weight: 78.0187 kg

DRUGS (1)
  1. GENERIC PAXIL CR TB24 25MG [Suspect]
     Indication: DEPRESSION
     Dosage: 25MG QD PO
     Route: 048
     Dates: start: 20080701, end: 20080730

REACTIONS (2)
  - FATIGUE [None]
  - PHARMACEUTICAL PRODUCT COMPLAINT [None]
